FAERS Safety Report 13792693 (Version 2)
Quarter: 2017Q4

REPORT INFORMATION
  Report Type: Spontaneous
  Country: GB (occurrence: GB)
  Receive Date: 20170725
  Receipt Date: 20171013
  Transmission Date: 20180320
  Serious: Yes (Other)
  Sender: FDA-Public Use
  Company Number: GB-MYLANLABS-2017M1043747

PATIENT
  Age: 38 Year
  Sex: Female
  Weight: 69.39 kg

DRUGS (2)
  1. VENTOLIN [Concomitant]
     Active Substance: ALBUTEROL SULFATE
     Route: 055
  2. IBUPROFEN. [Suspect]
     Active Substance: IBUPROFEN
     Indication: ARTHRALGIA
     Route: 048
     Dates: start: 20170704, end: 20170704

REACTIONS (7)
  - Ear discomfort [Recovered/Resolved]
  - Pruritus [Recovered/Resolved]
  - Reaction to excipient [Unknown]
  - Swollen tongue [Recovered/Resolved]
  - Sneezing [Recovered/Resolved]
  - Product substitution issue [Unknown]
  - Throat irritation [Recovered/Resolved]

NARRATIVE: CASE EVENT DATE: 20170704
